FAERS Safety Report 5274444-2 (Version None)
Quarter: 2007Q1

REPORT INFORMATION
  Report Type: 
  Country: None (occurrence: None)
  Receive Date: 20070320
  Receipt Date: 20070312
  Transmission Date: 20070707
  Serious: Yes (Other)
  Sender: FDA-Public Use
  Company Number: 238163

PATIENT
  Sex: Female

DRUGS (2)
  1. XOLAIR [Suspect]
  2. SINGULAIR [Concomitant]

REACTIONS (4)
  - ADVERSE EVENT [None]
  - CHEST DISCOMFORT [None]
  - NASAL CONGESTION [None]
  - POSTNASAL DRIP [None]
